FAERS Safety Report 5022014-3 (Version None)
Quarter: 2006Q2

REPORT INFORMATION
  Report Type: 
  Country: None (occurrence: None)
  Receive Date: 20060609
  Receipt Date: 20060522
  Transmission Date: 20061013
  Serious: Yes (Hospitalization)
  Sender: FDA-Public Use
  Company Number: ES-SP-2006-01342

PATIENT
  Age: 69 Year
  Sex: Male
  Weight: 90 kg

DRUGS (4)
  1. IMMUCYST [Suspect]
     Indication: BLADDER CANCER
     Route: 043
     Dates: start: 20050622, end: 20050622
  2. IMMUCYST [Suspect]
     Route: 043
     Dates: start: 20050928, end: 20050928
  3. REPAGLINIDE [Concomitant]
  4. VALSARTAN [Concomitant]

REACTIONS (2)
  - CYSTITIS NONINFECTIVE [None]
  - INFLAMMATION [None]
